FAERS Safety Report 14127078 (Version 1)
Quarter: 2017Q4

REPORT INFORMATION
  Report Type: Spontaneous
  Country: US (occurrence: US)
  Receive Date: 20171026
  Receipt Date: 20171026
  Transmission Date: 20180321
  Serious: Yes (Other)
  Sender: FDA-Public Use
  Company Number: US-CIPLA LTD.-2017US18504

PATIENT

DRUGS (8)
  1. MELATONIN [Concomitant]
     Active Substance: MELATONIN
     Indication: BIPOLAR DISORDER
  2. RISPERIDONE. [Suspect]
     Active Substance: RISPERIDONE
     Indication: BIPOLAR DISORDER
     Dosage: 1.7 MG, PER DAY
     Route: 065
     Dates: start: 201606
  3. LITHIUM OROTATE [Concomitant]
     Active Substance: LITHIUM OROTATE
     Indication: BIPOLAR DISORDER
     Dosage: 9800 ?G, BID
     Route: 065
  4. GUANFACINE. [Concomitant]
     Active Substance: GUANFACINE
     Indication: BIPOLAR DISORDER
  5. MELATONIN [Concomitant]
     Active Substance: MELATONIN
     Indication: ATTENTION DEFICIT/HYPERACTIVITY DISORDER
     Dosage: UNK
     Route: 065
  6. RISPERIDONE. [Suspect]
     Active Substance: RISPERIDONE
     Indication: ATTENTION DEFICIT/HYPERACTIVITY DISORDER
  7. LITHIUM OROTATE [Concomitant]
     Active Substance: LITHIUM OROTATE
     Indication: ATTENTION DEFICIT/HYPERACTIVITY DISORDER
     Dosage: 800 ?G, UNK
     Route: 065
  8. GUANFACINE. [Concomitant]
     Active Substance: GUANFACINE
     Indication: ATTENTION DEFICIT/HYPERACTIVITY DISORDER
     Dosage: 1 MG, PER DAY
     Route: 065

REACTIONS (2)
  - Condition aggravated [Not Recovered/Not Resolved]
  - Drug ineffective [Unknown]
